FAERS Safety Report 14286917 (Version 1)
Quarter: 2017Q4

REPORT INFORMATION
  Report Type: Spontaneous
  Country: US (occurrence: US)
  Receive Date: 20171214
  Receipt Date: 20171214
  Transmission Date: 20180321
  Serious: No
  Sender: FDA-Public Use
  Company Number: US-ASTELLAS-2017US031739

PATIENT
  Sex: Male

DRUGS (1)
  1. TARCEVA [Suspect]
     Active Substance: ERLOTINIB HYDROCHLORIDE
     Indication: LUNG NEOPLASM MALIGNANT
     Dosage: UNK UNK, UNKNOWN FREQ.
     Route: 065
     Dates: end: 20170330

REACTIONS (5)
  - Vision blurred [Not Recovered/Not Resolved]
  - Sluggishness [Recovered/Resolved]
  - Pain in extremity [Recovering/Resolving]
  - Lymphoedema [Recovering/Resolving]
  - Fatigue [Recovered/Resolved]
